FAERS Safety Report 9475214 (Version 1)
Quarter: 2013Q3

REPORT INFORMATION
  Report Type: Spontaneous
  Country: US (occurrence: None)
  Receive Date: 20130822
  Receipt Date: 20130822
  Transmission Date: 20140515
  Serious: Yes (Other)
  Sender: FDA-Public Use
  Company Number: None

PATIENT
  Age: 57 None
  Sex: Female

DRUGS (9)
  1. ARIMIDEX (ANASTROZOLE) [Suspect]
     Indication: BREAST CANCER
     Route: 048
     Dates: start: 201212, end: 201306
  2. LASIX [Concomitant]
  3. NADOLOE [Concomitant]
  4. ASPIRIN [Concomitant]
  5. ZETIA [Concomitant]
  6. CRESTOR [Concomitant]
  7. VITAMIN D [Concomitant]
  8. FISH OIL [Concomitant]
  9. SYNTHROID [Concomitant]

REACTIONS (4)
  - Fatigue [None]
  - Blood glucose increased [None]
  - Blood cholesterol increased [None]
  - Eye disorder [None]
